FAERS Safety Report 20155898 (Version 1)
Quarter: 2021Q4

REPORT INFORMATION
  Report Type: Spontaneous
  Country: US (occurrence: US)
  Receive Date: 20211207
  Receipt Date: 20211207
  Transmission Date: 20220304
  Serious: No
  Sender: FDA-Public Use
  Company Number: US-PFIZER INC-202101153881

PATIENT
  Age: 86 Year
  Sex: Female
  Weight: 65.76 kg

DRUGS (3)
  1. PREMARIN [Suspect]
     Active Substance: ESTROGENS, CONJUGATED
     Indication: Uterine tumour excision
     Dosage: 0.3 MG TABLET, BY MOUTH
     Route: 048
  2. PREMARIN [Suspect]
     Active Substance: ESTROGENS, CONJUGATED
     Indication: Hysterectomy
  3. PREMARIN [Suspect]
     Active Substance: ESTROGENS, CONJUGATED
     Indication: Oophorectomy

REACTIONS (3)
  - Intentional product misuse [Unknown]
  - Headache [Unknown]
  - Emotional disorder [Unknown]

NARRATIVE: CASE EVENT DATE: 20210101
